FAERS Safety Report 10016642 (Version 2)
Quarter: 2014Q1

REPORT INFORMATION
  Report Type: Spontaneous
  Country: US (occurrence: US)
  Receive Date: 20140317
  Receipt Date: 20140317
  Transmission Date: 20141002
  Serious: Yes (Disabling)
  Sender: FDA-Public Use
  Company Number: US-GE HEALTHCARE MEDICAL DIAGNOSTICS-OSCN-PR-0709S-0349

PATIENT
  Age: 64 Year
  Sex: Male

DRUGS (2)
  1. OMNISCAN [Suspect]
     Indication: LOCAL SWELLING
     Route: 042
     Dates: start: 20020702, end: 20020702
  2. OMNISCAN [Suspect]
     Indication: PRODUCT USED FOR UNKNOWN INDICATION
     Route: 042
     Dates: start: 20020709, end: 20020709

REACTIONS (1)
  - Nephrogenic systemic fibrosis [Not Recovered/Not Resolved]
